FAERS Safety Report 9286163 (Version 1)
Quarter: 2013Q2

REPORT INFORMATION
  Report Type: Spontaneous
  Country: BR (occurrence: BR)
  Receive Date: 20130513
  Receipt Date: 20130513
  Transmission Date: 20140414
  Serious: Yes (Hospitalization, Other)
  Sender: FDA-Public Use
  Company Number: BR-ASTRAZENECA-2013SE31143

PATIENT
  Age: 53 Year
  Sex: Female
  Weight: 81 kg

DRUGS (6)
  1. SELOZOK [Suspect]
     Indication: CARDIAC DISORDER
     Route: 048
     Dates: start: 2011
  2. SELOZOK [Suspect]
     Indication: HYPERTENSION
     Route: 048
     Dates: start: 2011
  3. OMEPRAZOLE [Suspect]
     Indication: GASTRIC DISORDER
     Route: 048
  4. DAFLON [Concomitant]
     Indication: CARDIOVASCULAR DISORDER
  5. UNKNOWN [Concomitant]
     Indication: MUSCLE RELAXANT THERAPY
  6. UNKNOWN [Concomitant]
     Indication: SEDATIVE THERAPY

REACTIONS (1)
  - Thrombosis [Recovering/Resolving]
